FAERS Safety Report 10785053 (Version 1)
Quarter: 2015Q1

REPORT INFORMATION
  Report Type: Spontaneous
  Country: TR (occurrence: None)
  Receive Date: 20150209
  Receipt Date: 20150209
  Transmission Date: 20150721
  Serious: Yes (Hospitalization)
  Sender: FDA-Public Use
  Company Number: INT_00683_2015

PATIENT
  Age: 44 Year
  Sex: Female

DRUGS (3)
  1. CISPLATIN. [Suspect]
     Active Substance: CISPLATIN
     Indication: SQUAMOUS CELL CARCINOMA
  2. 5-FU [Suspect]
     Active Substance: FLUOROURACIL
  3. TAXOTERE [Suspect]
     Active Substance: DOCETAXEL
     Indication: SQUAMOUS CELL CARCINOMA

REACTIONS (6)
  - Pneumatosis intestinalis [None]
  - Small intestinal obstruction [None]
  - Intestinal ischaemia [None]
  - Mesenteric arterial occlusion [None]
  - Gastrointestinal necrosis [None]
  - Mesenteric vein thrombosis [None]
